FAERS Safety Report 10589319 (Version 3)
Quarter: 2016Q4

REPORT INFORMATION
  Report Type: Spontaneous
  Country: SE (occurrence: SE)
  Receive Date: 20141118
  Receipt Date: 20161031
  Transmission Date: 20170206
  Serious: Yes (Death)
  Sender: FDA-Public Use
  Company Number: SE-AMGEN-SWESP2014088922

PATIENT
  Age: 30 Year
  Sex: Female

DRUGS (18)
  1. OMEPRAZOL PENSA                    /00661201/ [Concomitant]
     Dosage: UNK
  2. BETNOVAT                           /00008503/ [Concomitant]
     Dosage: UNK
  3. DORMICUM                           /00634103/ [Concomitant]
     Dosage: UNK
  4. PRIMPERAN [Concomitant]
     Active Substance: METOCLOPRAMIDE HYDROCHLORIDE
     Dosage: UNK
  5. SPIRONOLAKTON PFIZER [Concomitant]
     Active Substance: SPIRONOLACTONE
     Dosage: UNK
  6. ROBINUL [Concomitant]
     Active Substance: GLYCOPYRROLATE
     Dosage: UNK
  7. HALDOL [Concomitant]
     Active Substance: HALOPERIDOL
     Dosage: UNK
  8. INNOHEP [Concomitant]
     Active Substance: TINZAPARIN SODIUM
     Dosage: UNK
  9. REVATIO [Concomitant]
     Active Substance: SILDENAFIL CITRATE
     Dosage: UNK
  10. OXASCAND [Concomitant]
     Active Substance: OXAZEPAM
     Dosage: UNK
  11. VECTIBIX [Suspect]
     Active Substance: PANITUMUMAB
     Indication: PRODUCT USED FOR UNKNOWN INDICATION
     Dosage: UNK
     Route: 065
     Dates: start: 20140115, end: 20140115
  12. BISOPROLOL ORIFARM [Concomitant]
     Active Substance: BISOPROLOL
     Dosage: UNK
  13. MIRTAZAPIN KRKA [Concomitant]
     Active Substance: MIRTAZAPINE
     Dosage: UNK
  14. DAIVOBET [Concomitant]
     Active Substance: BETAMETHASONE DIPROPIONATE\CALCIPOTRIENE
     Dosage: UNK
  15. MORFIN MEDA [Concomitant]
     Active Substance: MORPHINE SULFATE
     Dosage: UNK
  16. ONDANSETRON TEVA                   /00955301/ [Concomitant]
     Dosage: UNK
  17. BETAPRED [Concomitant]
     Active Substance: BETAMETHASONE SODIUM PHOSPHATE
     Dosage: UNK
  18. FUROSEMID RECIP [Concomitant]
     Dosage: UNK

REACTIONS (1)
  - Arrhythmia [Fatal]

NARRATIVE: CASE EVENT DATE: 20140115
